FAERS Safety Report 8473085-3 (Version None)
Quarter: 2012Q2

REPORT INFORMATION
  Report Type: 
  Country: None (occurrence: None)
  Receive Date: 20120627
  Receipt Date: 20120615
  Transmission Date: 20120825
  Serious: No
  Sender: FDA-Public Use
  Company Number: US-ASTRAZENECA-2012SE39463

PATIENT
  Age: 59 Year
  Sex: Female

DRUGS (2)
  1. RHINOCORT [Suspect]
     Dosage: ONCE PER DAY
     Route: 045
  2. RHINOCORT [Suspect]
     Dosage: TWO SPRAYS TWICE A DAY
     Route: 045

REACTIONS (3)
  - INTENTIONAL DRUG MISUSE [None]
  - MALAISE [None]
  - HEADACHE [None]
